FAERS Safety Report 26121795 (Version 3)
Quarter: 2025Q4

REPORT INFORMATION
  Report Type: Spontaneous
  Country: CL (occurrence: CL)
  Receive Date: 20251204
  Receipt Date: 20251217
  Transmission Date: 20260118
  Serious: Yes (Death, Other)
  Sender: SANDOZ
  Company Number: CL-002147023-NVSC2025CL185081

PATIENT
  Age: 74 Year
  Sex: Female

DRUGS (6)
  1. FULVESTRANT [Suspect]
     Active Substance: FULVESTRANT
     Indication: Product used for unknown indication
     Dosage: UNK
     Route: 065
  2. KISQALI [Suspect]
     Active Substance: RIBOCICLIB SUCCINATE
     Indication: Breast cancer metastatic
     Dosage: 2 DOSAGE FORM (400 MG), QD, START DATE: 12-JUN-2025
     Route: 048
  3. LETROZOLE [Suspect]
     Active Substance: LETROZOLE
     Indication: Product used for unknown indication
     Dosage: UNK
     Route: 065
     Dates: start: 202309
  4. CARBAMAZEPINE [Concomitant]
     Active Substance: CARBAMAZEPINE
     Indication: Product used for unknown indication
     Dosage: UNK
     Route: 065
  5. LAMOTRIGINE [Concomitant]
     Active Substance: LAMOTRIGINE
     Indication: Trigeminal neuralgia
     Dosage: 50 MG
     Route: 065
  6. LAMOTRIGINE [Concomitant]
     Active Substance: LAMOTRIGINE
     Indication: Facial pain

REACTIONS (20)
  - Septic shock [Fatal]
  - Metastases to bone [Unknown]
  - Haemorrhage [Unknown]
  - Pathological fracture [Unknown]
  - Pulmonary oedema [Unknown]
  - Biliary dilatation [Unknown]
  - Metastases to lymph nodes [Unknown]
  - Lung disorder [Unknown]
  - Liver disorder [Unknown]
  - Gliosis [Unknown]
  - Hepatic cyst [Unknown]
  - Degenerative bone disease [Unknown]
  - Vertebral foraminal stenosis [Unknown]
  - Cardiomegaly [Unknown]
  - Breast disorder [Unknown]
  - Electrocardiogram abnormal [Unknown]
  - Electroencephalogram abnormal [Unknown]
  - Breast mass [Unknown]
  - Pain [Unknown]
  - Contraindicated product administered [Unknown]

NARRATIVE: CASE EVENT DATE: 20231003
